FAERS Safety Report 5309694-X (Version None)
Quarter: 2007Q2

REPORT INFORMATION
  Report Type: 
  Country: None (occurrence: None)
  Receive Date: 20070427
  Receipt Date: 20070417
  Transmission Date: 20071010
  Serious: Yes (Life-Threatening)
  Sender: FDA-Public Use
  Company Number: JP-ROCHE-486838

PATIENT
  Age: 15 Year
  Sex: Female

DRUGS (4)
  1. TAMIFLU [Suspect]
     Route: 048
     Dates: start: 20070306, end: 20070306
  2. PL [Concomitant]
     Route: 048
     Dates: start: 20070306, end: 20070313
  3. UNSPECIFIED DRUG [Concomitant]
     Dosage: DRUG NAME REPORTED AS ANTITUSSIVES AND EXPECTORANTS
     Route: 048
     Dates: start: 20070306
  4. UNSPECIFIED DRUG [Concomitant]
     Route: 048
     Dates: start: 20070306

REACTIONS (1)
  - ABNORMAL BEHAVIOUR [None]
